FAERS Safety Report 23861382 (Version 8)
Quarter: 2025Q4

REPORT INFORMATION
  Report Type: Report from Study
  Country: CO (occurrence: CO)
  Receive Date: 20240516
  Receipt Date: 20251002
  Transmission Date: 20260118
  Serious: Yes (Other)
  Sender: TAKEDA
  Company Number: CO-TAKEDA-2023TUS038653

PATIENT
  Age: 53 Year
  Sex: Female
  Weight: 73 kg

DRUGS (1)
  1. VEDOLIZUMAB [Suspect]
     Active Substance: VEDOLIZUMAB
     Indication: Crohn^s disease
     Dosage: 300 MILLIGRAM

REACTIONS (15)
  - Rectal haemorrhage [Unknown]
  - Faeces discoloured [Not Recovered/Not Resolved]
  - Eye discharge [Recovered/Resolved]
  - Eye irritation [Recovered/Resolved]
  - Influenza like illness [Unknown]
  - Illness [Unknown]
  - Viral infection [Not Recovered/Not Resolved]
  - Discouragement [Not Recovered/Not Resolved]
  - Discomfort [Unknown]
  - Abdominal pain [Not Recovered/Not Resolved]
  - Constipation [Unknown]
  - Diarrhoea [Not Recovered/Not Resolved]
  - Vomiting [Not Recovered/Not Resolved]
  - Arthralgia [Unknown]
  - Influenza [Not Recovered/Not Resolved]

NARRATIVE: CASE EVENT DATE: 20230412
